FAERS Safety Report 18740171 (Version 2)
Quarter: 2021Q1

REPORT INFORMATION
  Report Type: Spontaneous
  Country: GB (occurrence: GB)
  Receive Date: 20210114
  Receipt Date: 20210116
  Transmission Date: 20210419
  Serious: Yes (Death)
  Sender: FDA-Public Use
  Company Number: NVSC2021GB007210

PATIENT
  Age: 93 Year
  Sex: Female

DRUGS (1)
  1. CO?AMOXICLAV [Suspect]
     Active Substance: AMOXICILLIN\CLAVULANATE POTASSIUM
     Indication: PNEUMONIA ASPIRATION
     Dosage: 1.2 G
     Route: 042

REACTIONS (8)
  - Brain stem infarction [Fatal]
  - Somnolence [Unknown]
  - Unresponsive to stimuli [Unknown]
  - Malaise [Unknown]
  - Contraindicated product prescribed [Unknown]
  - Hypotension [Unknown]
  - Petechiae [Unknown]
  - Anaphylactic reaction [Not Recovered/Not Resolved]
